FAERS Safety Report 11877778 (Version 1)
Quarter: 2015Q4

REPORT INFORMATION
  Report Type: Report from Study
  Country: JP (occurrence: JP)
  Receive Date: 20151230
  Receipt Date: 20151230
  Transmission Date: 20160305
  Serious: Yes (Other)
  Sender: FDA-Public Use
  Company Number: JP-AMGEN-JPNNI2015139394

PATIENT
  Sex: Female
  Weight: 51 kg

DRUGS (8)
  1. DENOSUMAB [Suspect]
     Active Substance: DENOSUMAB
     Indication: OSTEOPOROSIS
     Dosage: 60 MG, UNK
     Route: 058
     Dates: start: 20131004
  2. CALFINA [Concomitant]
     Active Substance: ALFACALCIDOL
     Dosage: 0.5 MUG, QD
     Route: 048
     Dates: start: 20150507
  3. MAGMITT [Concomitant]
     Active Substance: MAGNESIUM OXIDE
     Dosage: 1000 MG, QD
     Route: 048
  4. EDIROL [Concomitant]
     Active Substance: ELDECALCITOL
     Dosage: 0.75 MUG, QD
     Route: 048
     Dates: start: 20120508, end: 20150507
  5. LANSOPRAZOLE. [Concomitant]
     Active Substance: LANSOPRAZOLE
     Dosage: 15 MG, QD
     Route: 048
     Dates: start: 20131026
  6. BLOPRESS [Concomitant]
     Active Substance: CANDESARTAN CILEXETIL
     Dosage: 2 MG, QD
     Route: 048
  7. FLUITRAN [Concomitant]
     Active Substance: TRICHLORMETHIAZIDE
     Dosage: 2 MG, QD
     Route: 048
  8. SARPOGRELATE                       /01279802/ [Concomitant]
     Dosage: 200 MG, QD
     Route: 048

REACTIONS (1)
  - Renal impairment [Recovering/Resolving]

NARRATIVE: CASE EVENT DATE: 20150507
